FAERS Safety Report 23985128 (Version 1)
Quarter: 2024Q2

REPORT INFORMATION
  Report Type: Spontaneous
  Country: US (occurrence: None)
  Receive Date: 20240617
  Receipt Date: 20240617
  Transmission Date: 20240716
  Serious: No
  Sender: FDA-Public Use
  Company Number: None

PATIENT
  Age: 54 Year
  Sex: Female
  Weight: 89.8 kg

DRUGS (8)
  1. DUPIXENT [Suspect]
     Active Substance: DUPILUMAB
     Indication: Asthma
     Dosage: FREQUENCY : EVERY OTHER WEEK;?
     Route: 058
     Dates: start: 20240503, end: 20240513
  2. FLECAINIDE [Concomitant]
     Active Substance: FLECAINIDE
  3. ATORVASTATIN [Concomitant]
     Active Substance: ATORVASTATIN
  4. MONTELUKAST [Concomitant]
  5. LETROZOLE [Concomitant]
     Active Substance: LETROZOLE
  6. metoptolol er succinate [Concomitant]
  7. ROPINIROLE [Concomitant]
     Active Substance: ROPINIROLE
  8. DULOXETINE DR [Concomitant]

REACTIONS (3)
  - Rash pruritic [None]
  - Skin reaction [None]
  - Haemorrhage [None]

NARRATIVE: CASE EVENT DATE: 20240503
